FAERS Safety Report 22078225 (Version 1)
Quarter: 2023Q1

REPORT INFORMATION
  Report Type: Spontaneous
  Country: SE (occurrence: SE)
  Receive Date: 20230309
  Receipt Date: 20230309
  Transmission Date: 20230418
  Serious: Yes (Hospitalization)
  Sender: FDA-Public Use
  Company Number: None

PATIENT
  Age: 76 Year
  Sex: Female

DRUGS (15)
  1. LEVETIRACETAM [Suspect]
     Active Substance: LEVETIRACETAM
     Indication: Visual impairment
     Dosage: UNK
     Dates: start: 20230111, end: 20230118
  2. DIAZEPAM [Concomitant]
     Active Substance: DIAZEPAM
     Dosage: 1 DF, AS NEEDED
  3. VAGIFEM [Concomitant]
     Active Substance: ESTRADIOL
     Dosage: 2-3 DF, WEEKLY
  4. GABAPENTIN [Concomitant]
     Active Substance: GABAPENTIN
     Dosage: 300 MG, 1X/DAY
     Dates: end: 20230118
  5. BACLOFEN [Concomitant]
     Active Substance: BACLOFEN
     Dosage: 10 MG, 1X/DAY
  6. REFRESH CELLUVISC [Concomitant]
     Active Substance: CARBOXYMETHYLCELLULOSE SODIUM
     Dosage: 1 DROP, AS NEEDED
  7. ELOCON [Concomitant]
     Active Substance: MOMETASONE FUROATE
     Dosage: ACCORDING TO SPECIFIC PRESCRIPTION
  8. LACTULOSE [Concomitant]
     Active Substance: LACTULOSE
     Dosage: 40 ML, 1X/DAY
  9. PROPYLESS [Concomitant]
     Dosage: 1 DF, 2X/DAY
  10. POSTAFEN [MECLOZINE] [Concomitant]
     Dosage: 1 DF, 2X/DAY AS NEEDED
  11. ZOLPIDEM [Concomitant]
     Active Substance: ZOLPIDEM TARTRATE
     Dosage: 1-2 DF, AS NEEDED
  12. ESCITALOPRAM [Concomitant]
     Active Substance: ESCITALOPRAM OXALATE
     Dosage: 5 MG
  13. ACETAMINOPHEN [Concomitant]
     Active Substance: ACETAMINOPHEN
     Dosage: 1 DF, AS NEEDED
  14. VIMPAT [Concomitant]
     Active Substance: LACOSAMIDE
     Dosage: 40 ML, 1X/DAY
  15. MOMETASONE FUROATE [Concomitant]
     Active Substance: MOMETASONE FUROATE
     Dosage: 1-2 DF, AS NEEDED

REACTIONS (4)
  - Confusional state [Recovering/Resolving]
  - Depressed level of consciousness [Recovering/Resolving]
  - Hallucination [Recovering/Resolving]
  - Off label use [Unknown]

NARRATIVE: CASE EVENT DATE: 20230101
